FAERS Safety Report 23443179 (Version 1)
Quarter: 2024Q1

REPORT INFORMATION
  Report Type: Spontaneous
  Country: US (occurrence: US)
  Receive Date: 20240125
  Receipt Date: 20240125
  Transmission Date: 20240410
  Serious: No
  Sender: FDA-Public Use
  Company Number: US-SA-SAC20240118001151

PATIENT
  Age: 59 Year
  Sex: Female
  Weight: 74 kg

DRUGS (8)
  1. DUPIXENT [Suspect]
     Active Substance: DUPILUMAB
     Indication: Dermatitis atopic
     Dosage: 2 PENS (600 MG) 1X
     Route: 058
     Dates: start: 202311, end: 202311
  2. DUPIXENT [Suspect]
     Active Substance: DUPILUMAB
     Dosage: 300 MG, QOW
     Route: 058
     Dates: start: 2023
  3. ZOLPIDEM [Concomitant]
     Active Substance: ZOLPIDEM TARTRATE
     Dosage: UNK
  4. METHOCARBAMOL [Concomitant]
     Active Substance: METHOCARBAMOL
     Dosage: UNK
  5. PANTOPRAZOLE [Concomitant]
     Active Substance: PANTOPRAZOLE
     Dosage: UNK
  6. CELECOXIB [Concomitant]
     Active Substance: CELECOXIB
     Dosage: UNK
  7. LEVOTHYROXINE [Concomitant]
     Active Substance: LEVOTHYROXINE\LEVOTHYROXINE SODIUM
     Dosage: UNK
  8. GABAPENTIN [Concomitant]
     Active Substance: GABAPENTIN
     Dosage: UNK

REACTIONS (2)
  - COVID-19 [Not Recovered/Not Resolved]
  - Cough [Not Recovered/Not Resolved]

NARRATIVE: CASE EVENT DATE: 20240110
